FAERS Safety Report 4494461-X (Version None)
Quarter: 2004Q4

REPORT INFORMATION
  Report Type: 
  Country: None (occurrence: None)
  Receive Date: 20041102
  Receipt Date: 20041020
  Transmission Date: 20050328
  Serious: Yes (Hospitalization)
  Sender: FDA-Public Use
  Company Number: 2004237219CA

PATIENT
  Age: 40 Year
  Sex: Female

DRUGS (4)
  1. BEXTRA [Suspect]
     Indication: BACK PAIN
     Dosage: 20 MG, QD, ORAL
     Route: 048
     Dates: start: 20040714, end: 20040717
  2. PERCOCET [Concomitant]
  3. NEURONTIN [Concomitant]
  4. CALCIUM WITH VITAMIN D (CALCIUM SODIUM LACTATE, CALCIUM PHOSPHATE, ERG [Concomitant]

REACTIONS (13)
  - ABDOMINAL PAIN [None]
  - ASTHENIA [None]
  - BLOOD GLUCOSE INCREASED [None]
  - CHILLS [None]
  - CONTUSION [None]
  - ERYTHEMA MULTIFORME [None]
  - EYE SWELLING [None]
  - FATIGUE [None]
  - MYALGIA [None]
  - NAUSEA [None]
  - PRURITUS [None]
  - STEVENS-JOHNSON SYNDROME [None]
  - URTICARIA [None]
